FAERS Safety Report 9202383 (Version 1)
Quarter: 2013Q2

REPORT INFORMATION
  Report Type: Spontaneous
  Country: JP (occurrence: JP)
  Receive Date: 20130401
  Receipt Date: 20130401
  Transmission Date: 20140414
  Serious: Yes (Hospitalization)
  Sender: FDA-Public Use
  Company Number: JP-ELI_LILLY_AND_COMPANY-JP201210000364

PATIENT
  Age: 75 Year
  Sex: Female

DRUGS (4)
  1. FORTEO [Suspect]
     Dosage: UNK
     Route: 058
     Dates: end: 201209
  2. FORTEO [Suspect]
     Route: 058
  3. FORTEO [Suspect]
     Route: 058
  4. INSULIN [Concomitant]
     Route: 058

REACTIONS (6)
  - Enterocolitis [Unknown]
  - Blood pressure increased [Recovered/Resolved]
  - Dizziness [Recovered/Resolved]
  - Alopecia [Recovered/Resolved]
  - Liver function test abnormal [Recovering/Resolving]
  - Back pain [Not Recovered/Not Resolved]
